FAERS Safety Report 5015421-6 (Version None)
Quarter: 2006Q2

REPORT INFORMATION
  Report Type: 
  Country: None (occurrence: None)
  Receive Date: 20060530
  Receipt Date: 20060530
  Transmission Date: 20061013
  Serious: Yes (Death)
  Sender: FDA-Public Use
  Company Number: None

PATIENT
  Age: 76 Year
  Sex: Female

DRUGS (3)
  1. TRAZODONE HCL [Suspect]
     Indication: ANXIETY
  2. CLONAZEPAM [Suspect]
  3. ENOXAPARIN SODIUM [Suspect]
     Dosage: 50 MG SQ Q 12
     Dates: start: 20050425

REACTIONS (17)
  - AGGRESSION [None]
  - ASTHENIA [None]
  - BLOOD PRESSURE DECREASED [None]
  - CARDIO-RESPIRATORY ARREST [None]
  - CHEST PAIN [None]
  - CONFUSIONAL STATE [None]
  - COORDINATION ABNORMAL [None]
  - DELIRIUM [None]
  - DEPRESSED LEVEL OF CONSCIOUSNESS [None]
  - DRUG HYPERSENSITIVITY [None]
  - FALL [None]
  - HEAD INJURY [None]
  - RESTLESSNESS [None]
  - SEDATION [None]
  - SMOKER [None]
  - SUBDURAL HAEMATOMA [None]
  - URINARY TRACT INFECTION [None]
